FAERS Safety Report 11163308 (Version 3)
Quarter: 2015Q3

REPORT INFORMATION
  Report Type: Other
  Country: CO (occurrence: CO)
  Receive Date: 20150604
  Receipt Date: 20150806
  Transmission Date: 20151125
  Serious: Yes (Other)
  Sender: FDA-Public Use
  Company Number: CO-SHIRE-CO201504776

PATIENT
  Age: 5 Year
  Sex: Male
  Weight: 20.7 kg

DRUGS (7)
  1. RANITIDINE [Concomitant]
     Active Substance: RANITIDINE\RANITIDINE HYDROCHLORIDE
     Dosage: 25 MG, ONE DOSE
     Route: 040
     Dates: start: 20150528, end: 20150528
  2. NORMAL SALINE [Concomitant]
     Active Substance: SODIUM CHLORIDE
     Indication: MEDICATION DILUTION
     Dosage: UNK, ONE DOSE IV BOLUS
     Route: 040
     Dates: start: 20150528, end: 20150528
  3. NORMAL SALINE [Concomitant]
     Active Substance: SODIUM CHLORIDE
     Dosage: 70ML, OTHER (CONTINUOUS IV DRIP AN HOUR)
     Route: 041
     Dates: start: 20150528
  4. RANITIDINE [Concomitant]
     Active Substance: RANITIDINE\RANITIDINE HYDROCHLORIDE
     Indication: PREMEDICATION
     Dosage: 25 MG, UNKNOWN
     Route: 065
     Dates: start: 20150528, end: 20150528
  5. LORATADINE. [Concomitant]
     Active Substance: LORATADINE
     Indication: PREMEDICATION
     Dosage: 10 MG, UNKNOWN
     Route: 065
     Dates: start: 20150528, end: 20150528
  6. ELAPRASE [Suspect]
     Active Substance: IDURSULFASE
     Indication: MUCOPOLYSACCHARIDOSIS II
     Dosage: 10 MG, 1X/WEEK
     Route: 041
     Dates: start: 20150430
  7. RANITIDINE [Concomitant]
     Active Substance: RANITIDINE\RANITIDINE HYDROCHLORIDE
     Dosage: 25 MG, ONE DOSE (AFTER 20 CC OF INFUSION ADMINISTERED)
     Route: 065
     Dates: start: 20150528, end: 20150528

REACTIONS (17)
  - Mucosal discolouration [Recovered/Resolved]
  - Vomiting [Recovered/Resolved]
  - Eye inflammation [Recovered/Resolved]
  - Blood pressure increased [Recovered/Resolved]
  - Infusion related reaction [Recovered/Resolved]
  - Asthenia [Recovered/Resolved]
  - Dizziness [Recovered/Resolved]
  - Eyelid oedema [Recovered/Resolved]
  - Diarrhoea [Recovered/Resolved]
  - Oedema mouth [Recovered/Resolved]
  - Oedema [Recovered/Resolved]
  - Heart rate increased [Recovered/Resolved]
  - Pallor [Recovered/Resolved]
  - Restlessness [Recovered/Resolved]
  - Nausea [Recovered/Resolved]
  - Rash generalised [Recovered/Resolved]
  - Underdose [Recovered/Resolved]

NARRATIVE: CASE EVENT DATE: 20150528
